FAERS Safety Report 5110335-5 (Version None)
Quarter: 2006Q3

REPORT INFORMATION
  Report Type: 
  Country: None (occurrence: None)
  Receive Date: 20060731
  Receipt Date: 20060625
  Transmission Date: 20061208
  Serious: No
  Sender: FDA-Public Use
  Company Number: 2006PV016384

PATIENT
  Age: 62 Year
  Sex: Female
  Weight: 122.9248 kg

DRUGS (4)
  1. BYETTA [Suspect]
     Indication: DIABETES MELLITUS NON-INSULIN-DEPENDENT
     Dosage: 5 MCG;BID; SC
     Route: 058
     Dates: start: 20060619
  2. GLYBURIDE [Concomitant]
  3. LEVOXYL [Concomitant]
  4. BENICAR [Concomitant]

REACTIONS (1)
  - VISION BLURRED [None]
